FAERS Safety Report 17840570 (Version 5)
Quarter: 2020Q3

REPORT INFORMATION
  Report Type: Spontaneous
  Country: US (occurrence: US)
  Receive Date: 20200529
  Receipt Date: 20200716
  Transmission Date: 20201103
  Serious: No
  Sender: FDA-Public Use
  Company Number: US-PFIZER INC-2019354390

PATIENT
  Age: 80 Year
  Sex: Male
  Weight: 86 kg

DRUGS (4)
  1. LYRICA [Suspect]
     Active Substance: PREGABALIN
     Indication: SOMNOLENCE
     Dosage: 200 MG, 2X/DAY (1 CAPSULE TWICE A DAY 30 DAYS)
     Route: 048
     Dates: end: 20200515
  2. LYRICA [Suspect]
     Active Substance: PREGABALIN
     Indication: CERVICAL RADICULOPATHY
     Dosage: 150 MG, 2X/DAY (1 CAPSULE TWICE A DAY 30 DAYS)
     Route: 048
  3. LYRICA [Suspect]
     Active Substance: PREGABALIN
     Indication: NEUROPATHY PERIPHERAL
  4. LYRICA [Suspect]
     Active Substance: PREGABALIN
     Indication: DIABETIC FOOT

REACTIONS (6)
  - Tremor [Recovered/Resolved]
  - Hypersomnia [Recovering/Resolving]
  - Arthralgia [Unknown]
  - Coordination abnormal [Recovered/Resolved]
  - Malaise [Recovering/Resolving]
  - Asthenia [Recovered/Resolved]

NARRATIVE: CASE EVENT DATE: 20200311
